FAERS Safety Report 10845370 (Version 1)
Quarter: 2015Q1

REPORT INFORMATION
  Report Type: Report from Study
  Country: US (occurrence: US)
  Receive Date: 20150220
  Receipt Date: 20150220
  Transmission Date: 20150721
  Serious: No
  Sender: FDA-Public Use
  Company Number: US-ABBVIE-14P-163-1300108-00

PATIENT
  Sex: Male

DRUGS (3)
  1. HUMIRA [Suspect]
     Active Substance: ADALIMUMAB
     Dosage: 2 WEEKS LATER
     Route: 065
     Dates: start: 201403
  2. HUMIRA [Suspect]
     Active Substance: ADALIMUMAB
     Indication: COLITIS ULCERATIVE
     Route: 065
     Dates: start: 20140227, end: 20140227
  3. HUMIRA [Suspect]
     Active Substance: ADALIMUMAB
     Dosage: 2 WEEKS LATER
     Route: 065
     Dates: start: 201403, end: 201403

REACTIONS (7)
  - Eye irritation [Not Recovered/Not Resolved]
  - Iritis [Recovered/Resolved]
  - Iritis [Not Recovered/Not Resolved]
  - Photophobia [Not Recovered/Not Resolved]
  - Herpes ophthalmic [Recovering/Resolving]
  - Ocular hyperaemia [Not Recovered/Not Resolved]
  - Iritis [Recovered/Resolved]

NARRATIVE: CASE EVENT DATE: 2014
